FAERS Safety Report 16461984 (Version 1)
Quarter: 2019Q2

REPORT INFORMATION
  Report Type: Report from Study
  Country: IT (occurrence: IT)
  Receive Date: 20190621
  Receipt Date: 20190621
  Transmission Date: 20190711
  Serious: Yes (Hospitalization)
  Sender: FDA-Public Use
  Company Number: IT-TEVA-2019-IT-1066749

PATIENT
  Age: 8 Year
  Sex: Male
  Weight: 51 kg

DRUGS (19)
  1. MABTHERA [Suspect]
     Active Substance: RITUXIMAB
     Indication: BURKITT^S LYMPHOMA
     Dosage: 555 MILLIGRAM
     Route: 042
     Dates: start: 20181001, end: 20181001
  2. URBASON [Concomitant]
     Active Substance: METHYLPREDNISOLONE
     Dosage: 10 MILLIGRAM
     Route: 037
     Dates: start: 20180925, end: 20181002
  3. CYCLOPHOSPHAMIDE. [Suspect]
     Active Substance: CYCLOPHOSPHAMIDE
     Indication: BURKITT^S LYMPHOMA
     Dosage: 296 MILLIGRAMS
     Route: 042
     Dates: start: 20180927, end: 20180928
  4. ZOFRAN [Concomitant]
     Active Substance: ONDANSETRON HYDROCHLORIDE
     Dosage: 16 MILLIGRAM DAILY;
     Route: 042
     Dates: start: 20180927, end: 20181006
  5. IFOSFAMIDE. [Suspect]
     Active Substance: IFOSFAMIDE
     Indication: BURKITT^S LYMPHOMA
     Dates: start: 20181002, end: 20181006
  6. CYTARABINE. [Suspect]
     Active Substance: CYTARABINE
     Route: 037
     Dates: start: 20180925, end: 20181002
  7. OMEPRAZOLE. [Concomitant]
     Active Substance: OMEPRAZOLE
     Dosage: 40 MILLIGRAM DAILY;
     Route: 042
     Dates: start: 20180927, end: 20181008
  8. ZYLORIC [Concomitant]
     Active Substance: ALLOPURINOL
     Dosage: 30 MILLIGRAM DAILY;
     Route: 048
     Dates: start: 20180927, end: 20181001
  9. LASIX [Concomitant]
     Active Substance: FUROSEMIDE
     Dosage: 20 MILLIGRAM DAILY;
     Route: 042
     Dates: start: 20180927, end: 20181001
  10. UROMITEXAN [Suspect]
     Active Substance: MESNA
     Indication: BURKITT^S LYMPHOMA
     Dosage: 110 MILLIGRAM
     Route: 042
     Dates: start: 20180927, end: 20180928
  11. LEDERFOLIN [Concomitant]
     Active Substance: LEUCOVORIN CALCIUM
     Dosage: 11 MILLIGRAM DAILY;
     Route: 042
     Dates: start: 20181003, end: 20181004
  12. DECADRON [Concomitant]
     Active Substance: DEXAMETHASONE
     Dosage: 7.4 MILLIGRAM DAILY;
     Route: 048
     Dates: start: 20180927, end: 20181012
  13. CYTARABINE. [Suspect]
     Active Substance: CYTARABINE
     Indication: BURKITT^S LYMPHOMA
     Dosage: 222 MILLIGRAM
     Route: 042
     Dates: start: 20181005
  14. DEURSIL [Concomitant]
     Active Substance: URSODIOL
     Dosage: 300 MILLIGRAM DAILY;
     Route: 048
     Dates: start: 20181012, end: 20181017
  15. METHOTREXATE. [Suspect]
     Active Substance: METHOTREXATE
     Indication: BURKITT^S LYMPHOMA
     Dosage: 1480 MILLIGRAM
     Route: 042
     Dates: start: 20181002, end: 20181002
  16. METHOTREXATE. [Suspect]
     Active Substance: METHOTREXATE
     Route: 037
     Dates: start: 20180925, end: 20181002
  17. MYCOSTATIN [Concomitant]
     Active Substance: NYSTATIN
     Dosage: 15 ML DAILY;
     Route: 048
     Dates: start: 20180925
  18. VINCRISTINE [Suspect]
     Active Substance: VINCRISTINE
     Indication: BURKITT^S LYMPHOMA
     Dosage: 2 MILLIGRAM
     Route: 042
     Dates: start: 20181002, end: 20181002
  19. BACTRIM [Concomitant]
     Active Substance: SULFAMETHOXAZOLE\TRIMETHOPRIM
     Dosage: 20 ML
     Route: 048
     Dates: start: 20180925

REACTIONS (2)
  - Leukopenia [Recovered/Resolved]
  - Neutropenia [Recovered/Resolved]

NARRATIVE: CASE EVENT DATE: 20181012
